FAERS Safety Report 16564891 (Version 2)
Quarter: 2019Q3

REPORT INFORMATION
  Report Type: Spontaneous
  Country: US (occurrence: US)
  Receive Date: 20190712
  Receipt Date: 20190729
  Transmission Date: 20191004
  Serious: No
  Sender: FDA-Public Use
  Company Number: US-BAUSCH-BL-2019-020017

PATIENT
  Sex: Male

DRUGS (2)
  1. RETIN-A MICRO [Suspect]
     Active Substance: TRETINOIN
     Indication: ACNE
     Dosage: APPLIED TO HIS FACE TWICE A WEEK.
     Route: 061
     Dates: start: 201906
  2. RETIN-A MICRO [Suspect]
     Active Substance: TRETINOIN
     Indication: SEBORRHOEA

REACTIONS (1)
  - Drug ineffective for unapproved indication [Unknown]

NARRATIVE: CASE EVENT DATE: 2019
